FAERS Safety Report 6964593-2 (Version None)
Quarter: 2010Q3

REPORT INFORMATION
  Report Type: 
  Country: None (occurrence: None)
  Receive Date: 20100903
  Receipt Date: 20100820
  Transmission Date: 20110219
  Serious: Yes (Other)
  Sender: FDA-Public Use
  Company Number: SE-BAYER-201032239GPV

PATIENT
  Age: 37 Year
  Sex: Female

DRUGS (1)
  1. MIRENA [Suspect]
     Indication: PRODUCT USED FOR UNKNOWN INDICATION
     Route: 015
     Dates: start: 20090610, end: 20100416

REACTIONS (37)
  - AREFLEXIA [None]
  - ASTHENIA [None]
  - ASTHENOPIA [None]
  - BALANCE DISORDER [None]
  - BRADYPHRENIA [None]
  - BREAST TENDERNESS [None]
  - DYSARTHRIA [None]
  - DYSPHAGIA [None]
  - EYE MOVEMENT DISORDER [None]
  - EYE PRURITUS [None]
  - FATIGUE [None]
  - FEELING HOT [None]
  - GAIT DISTURBANCE [None]
  - HEARING IMPAIRED [None]
  - HEMIPARESIS [None]
  - HYPERACUSIS [None]
  - HYPOAESTHESIA [None]
  - HYPOAESTHESIA FACIAL [None]
  - IRRITABILITY [None]
  - LACRIMATION INCREASED [None]
  - LYMPH NODE PAIN [None]
  - MEMORY IMPAIRMENT [None]
  - MENTAL IMPAIRMENT [None]
  - NIGHT SWEATS [None]
  - NOCTURIA [None]
  - PARAESTHESIA [None]
  - PHOTOPSIA [None]
  - RASH PRURITIC [None]
  - READING DISORDER [None]
  - RESTLESSNESS [None]
  - SENSORY DISTURBANCE [None]
  - SKIN DISCOLOURATION [None]
  - SLEEP DISORDER [None]
  - SPEECH DISORDER [None]
  - TREMOR [None]
  - URINARY INCONTINENCE [None]
  - VISION BLURRED [None]
